FAERS Safety Report 16205275 (Version 1)
Quarter: 2019Q2

REPORT INFORMATION
  Report Type: Spontaneous
  Country: US (occurrence: US)
  Receive Date: 20190416
  Receipt Date: 20190416
  Transmission Date: 20190711
  Serious: No
  Sender: FDA-Public Use
  Company Number: US-ELI_LILLY_AND_COMPANY-US201904004599

PATIENT
  Sex: Male

DRUGS (6)
  1. HUMULIN R [Suspect]
     Active Substance: INSULIN HUMAN
     Indication: DIABETES MELLITUS
     Dosage: 15 IU, TID
     Route: 058
     Dates: start: 2012
  2. HUMULIN N [Suspect]
     Active Substance: INSULIN HUMAN
     Indication: DIABETES MELLITUS
     Dosage: 30 IU, BID
     Route: 058
     Dates: start: 2012
  3. HUMULIN N [Suspect]
     Active Substance: INSULIN HUMAN
     Dosage: 30 IU, BID
     Route: 058
  4. HUMALOG [Suspect]
     Active Substance: INSULIN LISPRO
     Indication: DIABETES MELLITUS
     Dosage: UNK UNK, UNKNOWN
     Route: 058
     Dates: start: 201901
  5. HUMULIN R [Suspect]
     Active Substance: INSULIN HUMAN
     Dosage: 15 IU, TID
     Route: 058
  6. HUMALOG [Suspect]
     Active Substance: INSULIN LISPRO
     Dosage: UNK UNK, UNKNOWN
     Route: 058

REACTIONS (2)
  - Blood glucose increased [Unknown]
  - Wrong patient received product [Unknown]

NARRATIVE: CASE EVENT DATE: 201812
